FAERS Safety Report 26056570 (Version 1)
Quarter: 2025Q4

REPORT INFORMATION
  Report Type: Spontaneous
  Country: US (occurrence: US)
  Receive Date: 20251118
  Receipt Date: 20251118
  Transmission Date: 20260118
  Serious: No
  Sender: BIOVITRUM
  Company Number: US-BIOVITRUM-2025-US-015688

PATIENT
  Age: 74 Year
  Sex: Male

DRUGS (2)
  1. VONJO [Suspect]
     Active Substance: PACRITINIB
     Indication: Myeloproliferative neoplasm
     Dosage: DAILY
     Route: 048
     Dates: start: 20250419
  2. VONJO [Suspect]
     Active Substance: PACRITINIB
     Dosage: 2 PER DAY
     Route: 048

REACTIONS (2)
  - Illness [Unknown]
  - Off label use [Not Recovered/Not Resolved]

NARRATIVE: CASE EVENT DATE: 20250419
